FAERS Safety Report 9782686 (Version 3)
Quarter: 2014Q1

REPORT INFORMATION
  Report Type: Spontaneous
  Country: FR (occurrence: None)
  Receive Date: 20131220
  Receipt Date: 20140318
  Transmission Date: 20141002
  Serious: Yes (Life-Threatening, Hospitalization)
  Sender: FDA-Public Use
  Company Number: 2070997

PATIENT
  Age: 66 Year
  Sex: Female

DRUGS (9)
  1. CARBOPLATIN [Suspect]
     Indication: OVARIAN CANCER
     Route: 042
     Dates: start: 20131108
  2. PACLITAXEL [Suspect]
     Indication: OVARIAN CANCER
     Route: 042
     Dates: start: 20131108
  3. (PRIMPERAN) [Concomitant]
  4. (ATARAX) [Concomitant]
  5. (LEVOTHYROX) [Concomitant]
  6. (ACUPAN) [Concomitant]
  7. (DOLIPRANE) [Concomitant]
  8. (TOPALGIC LP) [Concomitant]
  9. (TOPALGIC) [Concomitant]

REACTIONS (4)
  - Haematotoxicity [None]
  - Anaemia [None]
  - Thrombocytopenia [None]
  - Neutropenia [None]
